FAERS Safety Report 15722610 (Version 10)
Quarter: 2019Q2

REPORT INFORMATION
  Report Type: Report from Study
  Country: IE (occurrence: IE)
  Receive Date: 20181214
  Receipt Date: 20190513
  Transmission Date: 20190711
  Serious: Yes (Hospitalization, Other)
  Sender: FDA-Public Use
  Company Number: PHHY2018IE165153

PATIENT
  Age: 70 Year
  Sex: Male

DRUGS (2)
  1. VOTRIENT [Suspect]
     Active Substance: PAZOPANIB HYDROCHLORIDE
     Indication: PRODUCT USED FOR UNKNOWN INDICATION
     Dosage: 600 MG, QD
     Route: 065
     Dates: start: 20170208
  2. VOTRIENT [Suspect]
     Active Substance: PAZOPANIB HYDROCHLORIDE
     Dosage: 600 MG, UNK
     Route: 065
     Dates: start: 20181221, end: 20190503

REACTIONS (20)
  - C-reactive protein increased [Recovering/Resolving]
  - Blood creatinine increased [Recovered/Resolved]
  - Mean cell volume increased [Recovered/Resolved]
  - Red blood cell count decreased [Not Recovered/Not Resolved]
  - Body temperature increased [Recovered/Resolved]
  - Mean cell haemoglobin concentration decreased [Not Recovered/Not Resolved]
  - Haemoglobin decreased [Not Recovered/Not Resolved]
  - Haemoglobin decreased [Recovered/Resolved]
  - Hair colour changes [Not Recovered/Not Resolved]
  - Hypertension [Not Recovered/Not Resolved]
  - Haematoma [Unknown]
  - Blood alkaline phosphatase increased [Recovered/Resolved]
  - Protein total decreased [Unknown]
  - Pulmonary mass [Not Recovered/Not Resolved]
  - Blood creatinine increased [Unknown]
  - Gamma-glutamyltransferase increased [Not Recovered/Not Resolved]
  - Disease progression [Unknown]
  - Haematocrit decreased [Unknown]
  - Red blood cell count decreased [Recovered/Resolved]
  - Red cell distribution width increased [Not Recovered/Not Resolved]

NARRATIVE: CASE EVENT DATE: 20170320
